FAERS Safety Report 17999521 (Version 1)
Quarter: 2020Q3

REPORT INFORMATION
  Report Type: Spontaneous
  Country: US (occurrence: US)
  Receive Date: 20200709
  Receipt Date: 20200709
  Transmission Date: 20201103
  Serious: No
  Sender: FDA-Public Use
  Company Number: None

PATIENT
  Age: 83 Year
  Sex: Male
  Weight: 112.5 kg

DRUGS (10)
  1. WARFARIN [Concomitant]
     Active Substance: WARFARIN
  2. PREGABALIN. [Suspect]
     Active Substance: PREGABALIN
     Indication: PAIN
     Dosage: ?          QUANTITY:1 CAPSULE(S);?
     Route: 048
     Dates: start: 20200703, end: 20200706
  3. CARVEDILOL. [Concomitant]
     Active Substance: CARVEDILOL
  4. MULTIPLE VITAMINS [Concomitant]
     Active Substance: VITAMINS
  5. BENAZEPRIL [Concomitant]
     Active Substance: BENAZEPRIL HYDROCHLORIDE
  6. DOCUSATE SODIUM. [Concomitant]
     Active Substance: DOCUSATE SODIUM
  7. FOLIC ACID. [Concomitant]
     Active Substance: FOLIC ACID
  8. COENZYME Q10 [Concomitant]
     Active Substance: DIETARY SUPPLEMENT\UBIDECARENONE
  9. ASPIRIN. [Concomitant]
     Active Substance: ASPIRIN
  10. DOFETILIDE. [Concomitant]
     Active Substance: DOFETILIDE

REACTIONS (4)
  - Dyskinesia [None]
  - Ataxia [None]
  - Diplopia [None]
  - Asthenia [None]

NARRATIVE: CASE EVENT DATE: 20200706
